FAERS Safety Report 5898175-0 (Version None)
Quarter: 2008Q3

REPORT INFORMATION
  Report Type: 
  Country: None (occurrence: None)
  Receive Date: 20080925
  Receipt Date: 20080916
  Transmission Date: 20090109
  Serious: Yes (Disabling)
  Sender: FDA-Public Use
  Company Number: US-MERCK-0806USA00048

PATIENT
  Age: 75 Year
  Sex: Female

DRUGS (6)
  1. JANUMET [Suspect]
     Indication: TYPE 2 DIABETES MELLITUS
     Route: 048
     Dates: start: 20080523, end: 20080526
  2. ACTOS [Concomitant]
     Route: 065
  3. GLYBURIDE [Concomitant]
     Route: 065
  4. AMLODIPINE BESYLATE [Concomitant]
     Route: 065
  5. CLONIDINE [Concomitant]
     Route: 065
  6. LOVASTATIN [Concomitant]
     Route: 065

REACTIONS (4)
  - DISCOMFORT [None]
  - HEADACHE [None]
  - NAUSEA [None]
  - VISION BLURRED [None]
